FAERS Safety Report 23649070 (Version 6)
Quarter: 2024Q4

REPORT INFORMATION
  Report Type: Spontaneous
  Country: US (occurrence: US)
  Receive Date: 20240319
  Receipt Date: 20241216
  Transmission Date: 20250114
  Serious: No
  Sender: BRISTOL-MYERS SQUIBB COMPANY
  Company Number: US-BRISTOL-MYERS SQUIBB COMPANY-2024-043592

PATIENT
  Age: 64 Year
  Sex: Female

DRUGS (3)
  1. REVLIMID [Suspect]
     Active Substance: LENALIDOMIDE
     Indication: Plasma cell myeloma in remission
     Route: 048
  2. REVLIMID [Suspect]
     Active Substance: LENALIDOMIDE
     Route: 048
  3. REVLIMID [Suspect]
     Active Substance: LENALIDOMIDE
     Route: 048

REACTIONS (8)
  - Fatigue [Unknown]
  - Tooth disorder [Unknown]
  - Myalgia [Unknown]
  - Product dose omission issue [Unknown]
  - Neutrophil count decreased [Unknown]
  - Diarrhoea [Unknown]
  - Memory impairment [Unknown]
  - Off label use [Unknown]
